FAERS Safety Report 9291077 (Version 5)
Quarter: 2015Q1

REPORT INFORMATION
  Report Type: Spontaneous
  Country: US (occurrence: US)
  Receive Date: 20130515
  Receipt Date: 20150212
  Transmission Date: 20150721
  Serious: No
  Sender: FDA-Public Use
  Company Number: US-009507513-1305USA008425

PATIENT
  Sex: Male

DRUGS (2)
  1. FINASTERIDE. [Suspect]
     Active Substance: FINASTERIDE
     Indication: ANDROGENETIC ALOPECIA
     Dosage: 1 MG, QD
     Route: 048
     Dates: start: 20130206, end: 2013
  2. PROPECIA [Suspect]
     Active Substance: FINASTERIDE
     Indication: ANDROGENETIC ALOPECIA
     Dosage: 1 MG, QD
     Route: 048
     Dates: start: 2002

REACTIONS (6)
  - Erectile dysfunction [Recovered/Resolved]
  - Libido decreased [Unknown]
  - Marital problem [Unknown]
  - Sexual dysfunction [Not Recovered/Not Resolved]
  - Stress [Unknown]
  - Hypogonadism [Unknown]

NARRATIVE: CASE EVENT DATE: 2006
